FAERS Safety Report 17546023 (Version 1)
Quarter: 2020Q1

REPORT INFORMATION
  Report Type: Spontaneous
  Country: GB (occurrence: GB)
  Receive Date: 20200316
  Receipt Date: 20200316
  Transmission Date: 20200409
  Serious: Yes (Hospitalization, Other)
  Sender: FDA-Public Use
  Company Number: GB-SA-2020SA062422

PATIENT
  Age: 51 Year
  Sex: Male

DRUGS (1)
  1. LIXISENATIDE [Suspect]
     Active Substance: LIXISENATIDE
     Route: 065
     Dates: start: 20190821

REACTIONS (2)
  - Diabetic ketoacidosis [Unknown]
  - Deprescribing error [Unknown]
